FAERS Safety Report 9008645 (Version 2)
Quarter: 2013Q4

REPORT INFORMATION
  Report Type: Spontaneous
  Country: US (occurrence: US)
  Receive Date: 20130111
  Receipt Date: 20131120
  Transmission Date: 20140711
  Serious: Yes (Hospitalization, Other)
  Sender: FDA-Public Use
  Company Number: US-BAYER-2013-003660

PATIENT
  Age: 24 Year
  Sex: Female

DRUGS (7)
  1. OCELLA [Suspect]
     Indication: CONTRACEPTION
  2. YASMIN [Suspect]
     Indication: CONTRACEPTION
  3. PAXIL [Concomitant]
     Indication: ANXIETY
     Dosage: DAILY DOSE 10 MG
     Route: 048
     Dates: start: 20080304
  4. NEXIUM [Concomitant]
     Indication: GASTROOESOPHAGEAL REFLUX DISEASE
     Dosage: DAILY DOSE 40 MG
     Route: 048
     Dates: start: 20080304
  5. SINGULAIR [Concomitant]
     Indication: SINUS CONGESTION
     Dosage: DAILY DOSE 10 MG
     Route: 048
     Dates: start: 20080304
  6. LORAZEPAM [Concomitant]
     Dosage: 0.5 MG, BID
     Route: 048
     Dates: start: 20080304
  7. HYOSCYAMINE [Concomitant]
     Dosage: 0.125 MG, PRN
     Dates: start: 20080304

REACTIONS (6)
  - Cholecystitis chronic [None]
  - Bile duct stone [None]
  - Cholecystectomy [None]
  - Injury [None]
  - Pain [None]
  - Pain [None]
